FAERS Safety Report 24969629 (Version 3)
Quarter: 2025Q1

REPORT INFORMATION
  Report Type: Spontaneous
  Country: US (occurrence: US)
  Receive Date: 20250214
  Receipt Date: 20250326
  Transmission Date: 20250408
  Serious: No
  Sender: SUNOVION
  Company Number: US-SMPA-2025SPA001120AA

PATIENT

DRUGS (7)
  1. ORGOVYX [Suspect]
     Active Substance: RELUGOLIX
     Indication: Prostate cancer
     Dosage: 360 MG, SINGLE
     Route: 048
     Dates: start: 20241218, end: 20241218
  2. ORGOVYX [Suspect]
     Active Substance: RELUGOLIX
     Dosage: 120 MG, QD
     Route: 048
     Dates: start: 20241219
  3. LUPRON [Suspect]
     Active Substance: LEUPROLIDE ACETATE
     Route: 065
  4. NAPROXEN [Concomitant]
     Active Substance: NAPROXEN
     Route: 048
  5. IBUPROFEN [Concomitant]
     Active Substance: IBUPROFEN
     Route: 048
  6. PREDNISONE [Concomitant]
     Active Substance: PREDNISONE
     Route: 048
  7. ZYTIGA [Concomitant]
     Active Substance: ABIRATERONE ACETATE
     Route: 048

REACTIONS (4)
  - Autonomic nervous system imbalance [Unknown]
  - Pain in extremity [Unknown]
  - Hot flush [Unknown]
  - Product dose omission issue [Unknown]
